FAERS Safety Report 16131011 (Version 1)
Quarter: 2019Q1

REPORT INFORMATION
  Report Type: Spontaneous
  Country: US (occurrence: US)
  Receive Date: 20190328
  Receipt Date: 20190328
  Transmission Date: 20190418
  Serious: Yes (Disabling, Other)
  Sender: FDA-Public Use
  Company Number: US-GE HEALTHCARE LIFE SCIENCES-2019CSU001775

PATIENT
  Age: 74 Year
  Sex: Male

DRUGS (2)
  1. OMNISCAN [Suspect]
     Active Substance: GADODIAMIDE
     Indication: PRODUCT USED FOR UNKNOWN INDICATION
  2. OMNISCAN [Suspect]
     Active Substance: GADODIAMIDE
     Indication: NUCLEAR MAGNETIC RESONANCE IMAGING
     Dosage: UNK, SINGLE
     Route: 042

REACTIONS (19)
  - Immobile [Unknown]
  - Skin hypertrophy [Unknown]
  - Asthenia [Unknown]
  - Bone pain [Unknown]
  - Disturbance in attention [Unknown]
  - Feeling abnormal [Unknown]
  - Tremor [Unknown]
  - Headache [Unknown]
  - Rash [Unknown]
  - Anxiety [Not Recovered/Not Resolved]
  - Emotional distress [Not Recovered/Not Resolved]
  - Pain [Unknown]
  - Arthralgia [Unknown]
  - Gadolinium deposition disease [Unknown]
  - Pruritus [Unknown]
  - Amnesia [Unknown]
  - Injury [Not Recovered/Not Resolved]
  - Hyperhidrosis [Unknown]
  - Nephrogenic systemic fibrosis [Unknown]
